FAERS Safety Report 13705482 (Version 3)
Quarter: 2025Q3

REPORT INFORMATION
  Report Type: Spontaneous
  Country: US (occurrence: US)
  Receive Date: 20170630
  Receipt Date: 20250912
  Transmission Date: 20251021
  Serious: Yes (Hospitalization, Other)
  Sender: AUROBINDO
  Company Number: US-AUROBINDO-AUR-APL-2017-36101

PATIENT
  Age: 40 Year
  Sex: Male

DRUGS (9)
  1. LAMIVUDINE\ZIDOVUDINE [Interacting]
     Active Substance: LAMIVUDINE\ZIDOVUDINE
     Indication: HIV infection
     Route: 065
     Dates: start: 1993
  2. LAMIVUDINE\ZIDOVUDINE [Interacting]
     Active Substance: LAMIVUDINE\ZIDOVUDINE
     Dosage: 300 MILLIGRAM, ONCE A DAY  (IN THE EVENING)
     Route: 065
     Dates: start: 1993
  3. TACROLIMUS [Interacting]
     Active Substance: TACROLIMUS
     Indication: Immunosuppressant drug therapy
     Dosage: 0.2 MG, EVERY WEEK
     Route: 065
  4. RITONAVIR [Interacting]
     Active Substance: RITONAVIR
     Indication: HIV infection
     Route: 065
     Dates: start: 1993
  5. ATAZANAVIR [Interacting]
     Active Substance: ATAZANAVIR
     Indication: HIV infection
     Route: 065
     Dates: start: 1993
  6. MYCOPHENOLATE MOFETIL [Concomitant]
     Active Substance: MYCOPHENOLATE MOFETIL
     Indication: Immunosuppressant drug therapy
     Dosage: 500 MG, TWO TIMES A DAY
     Route: 065
  7. MYCOPHENOLATE MOFETIL [Concomitant]
     Active Substance: MYCOPHENOLATE MOFETIL
     Dosage: 500 UNK, TWO TIMES A DAY
     Route: 065
  8. MYCOPHENOLATE MOFETIL [Concomitant]
     Active Substance: MYCOPHENOLATE MOFETIL
     Dosage: 1000 MILLIGRAM, ONCE A DAY
     Route: 065
  9. PREDNISONE [Concomitant]
     Active Substance: PREDNISONE
     Indication: Immunosuppressant drug therapy
     Route: 065

REACTIONS (7)
  - Acute kidney injury [Recovering/Resolving]
  - Headache [Unknown]
  - Diarrhoea [Unknown]
  - Malaise [Unknown]
  - Product preparation error [Unknown]
  - Toxicity to various agents [Recovering/Resolving]
  - Drug interaction [Unknown]
